FAERS Safety Report 4633773-3 (Version None)
Quarter: 2005Q1

REPORT INFORMATION
  Report Type: 
  Country: None (occurrence: None)
  Receive Date: 20050325
  Receipt Date: 20050124
  Transmission Date: 20050727
  Serious: No
  Sender: FDA-Public Use
  Company Number: USA041285969

PATIENT
  Age: 76 Year
  Sex: Female
  Weight: 61 kg

DRUGS (11)
  1. FORTEO [Suspect]
     Indication: OSTEOPOROSIS
     Dosage: 20 UG/1 DAY
     Dates: start: 20041115
  2. CORGARD [Concomitant]
  3. SYNTHROID [Concomitant]
  4. ASPIRIN [Concomitant]
  5. CALCIUM AND VITAMIN D [Concomitant]
  6. VITAMIN B12 FOR INJECTION (CYANOCOBALAMIN) [Concomitant]
  7. MULTIVITAMIN NOS (MULTIVITAMIN NOS) [Concomitant]
  8. BIOTIN [Concomitant]
  9. COMPLEX [Concomitant]
  10. NIACIN [Concomitant]
  11. VITAMIN C [Concomitant]

REACTIONS (1)
  - CYSTITIS [None]
